FAERS Safety Report 14805606 (Version 4)
Quarter: 2018Q3

REPORT INFORMATION
  Report Type: Report from Study
  Country: JP (occurrence: JP)
  Receive Date: 20180425
  Receipt Date: 20180814
  Transmission Date: 20181010
  Serious: Yes (Death, Other)
  Sender: FDA-Public Use
  Company Number: PHJP2018JP009516

PATIENT
  Age: 47 Year
  Sex: Male
  Weight: 59 kg

DRUGS (6)
  1. COSENTYX [Suspect]
     Active Substance: SECUKINUMAB
     Indication: PSORIATIC ARTHROPATHY
     Dosage: 300 MG, QW
     Route: 058
     Dates: start: 20170622, end: 20170720
  2. COSENTYX [Suspect]
     Active Substance: SECUKINUMAB
     Dosage: 300 MG, 4W
     Route: 058
     Dates: start: 20170817
  3. ISCOTIN [Concomitant]
     Active Substance: ISONIAZID
     Indication: PROPHYLAXIS
     Dosage: 300 MG, UNK
     Route: 048
     Dates: start: 20170601, end: 20180319
  4. LOXOPROFEN SODIUM HYDRATE [Concomitant]
     Active Substance: LOXOPROFEN SODIUM DIHYDRATE
     Indication: PSORIASIS
     Dosage: 180 MG, UNK
     Route: 048
     Dates: start: 20180118, end: 20180217
  5. UREPEARL [Concomitant]
     Active Substance: UREA
     Indication: PSORIASIS
     Dosage: 2 G, UNK
     Route: 061
     Dates: start: 20170629
  6. DOVOBET [Concomitant]
     Active Substance: BETAMETHASONE\CALCIPOTRIENE
     Indication: PSORIASIS
     Dosage: 2 G, UNK
     Route: 061
     Dates: start: 20170601

REACTIONS (5)
  - Aspartate aminotransferase increased [Unknown]
  - Arrhythmia [Fatal]
  - Concomitant disease aggravated [Fatal]
  - Ultrasound liver abnormal [Unknown]
  - Hyperkalaemia [Fatal]

NARRATIVE: CASE EVENT DATE: 20180208
